FAERS Safety Report 7576803-1 (Version None)
Quarter: 2011Q2

REPORT INFORMATION
  Report Type: 
  Country: None (occurrence: None)
  Receive Date: 20110628
  Receipt Date: 20110531
  Transmission Date: 20111010
  Serious: Yes (Hospitalization, Other)
  Sender: FDA-Public Use
  Company Number: US-BAYER-201039730NA

PATIENT
  Age: 45 Year
  Sex: Female
  Weight: 73.923 kg

DRUGS (11)
  1. YASMIN [Suspect]
     Route: 048
     Dates: start: 20050101
  2. ANTIHISTAMINES [Concomitant]
  3. ASPIRIN [Concomitant]
     Dosage: UNK
  4. YAZ [Suspect]
     Dosage: UNK
     Dates: start: 20070305, end: 20071201
  5. PLAVIX [Concomitant]
  6. ATORVASTATIN [Concomitant]
  7. YAZ [Suspect]
     Route: 048
     Dates: start: 20050101
  8. LISINOPRIL [Concomitant]
  9. MEDROL [Concomitant]
     Indication: RASH
  10. YASMIN [Suspect]
     Dosage: UNK
     Dates: start: 20030101, end: 20050101
  11. ATENOLOL [Concomitant]

REACTIONS (3)
  - PARADOXICAL EMBOLISM [None]
  - MYOCARDIAL INFARCTION [None]
  - CORONARY ARTERY THROMBOSIS [None]
